APPROVED DRUG PRODUCT: SPORANOX
Active Ingredient: ITRACONAZOLE
Strength: 100MG
Dosage Form/Route: CAPSULE;ORAL
Application: N020083 | Product #001 | TE Code: AB
Applicant: JANSSEN PHARMACEUTICALS INC
Approved: Sep 11, 1992 | RLD: Yes | RS: Yes | Type: RX